FAERS Safety Report 4497578-9 (Version None)
Quarter: 2004Q4

REPORT INFORMATION
  Report Type: 
  Country: None (occurrence: None)
  Receive Date: 20041108
  Receipt Date: 20041027
  Transmission Date: 20050328
  Serious: Yes (Death)
  Sender: FDA-Public Use
  Company Number: US-JNJFOC-20041008420

PATIENT
  Age: 72 Year
  Sex: Female
  Weight: 86.64 kg

DRUGS (7)
  1. ULTRACET [Suspect]
     Indication: ARTHRITIS
     Route: 049
  2. BEXTRA [Concomitant]
  3. FOLIC ACID [Concomitant]
  4. AMITRIPTYLINE HCL [Concomitant]
  5. SULFASALAZINE [Concomitant]
     Indication: SLEEP DISORDER THERAPY
  6. DIAZIDE [Concomitant]
  7. TOPROL-XL [Concomitant]

REACTIONS (1)
  - UPPER GASTROINTESTINAL HAEMORRHAGE [None]
